FAERS Safety Report 18705740 (Version 2)
Quarter: 2021Q1

REPORT INFORMATION
  Report Type: Other
  Country: US (occurrence: US)
  Receive Date: 20210106
  Receipt Date: 20210119
  Transmission Date: 20210419
  Serious: Yes (Hospitalization)
  Sender: FDA-Public Use
  Company Number: US-ROCHE-2432562

PATIENT
  Age: 56 Year
  Sex: Female
  Weight: 110.78 kg

DRUGS (3)
  1. BACLOFEN. [Concomitant]
     Active Substance: BACLOFEN
     Indication: MUSCLE SPASMS
     Route: 048
  2. OCREVUS [Suspect]
     Active Substance: OCRELIZUMAB
     Indication: MULTIPLE SCLEROSIS
     Dosage: ON 08/FEB/2018 AND 22/FEB/2018, RECEIVED OCRELIZUMAB OF AN UNKNOWN DOSAGE FORM
     Route: 042
     Dates: start: 2016
  3. OCREVUS [Suspect]
     Active Substance: OCRELIZUMAB
     Dosage: 06/FEB/2019, 05/AUG/2019, 05/FEB/2020 AND 07/AUG/2020, RECEIVED OCRELIZUMAB OF AN UNKNOWN DOSAGE FOR
     Route: 042
     Dates: start: 20180807

REACTIONS (9)
  - Protein deficiency [Recovered/Resolved]
  - Muscle spasms [Not Recovered/Not Resolved]
  - Dysgeusia [Unknown]
  - Kidney infection [Recovered/Resolved]
  - Fatigue [Recovered/Resolved with Sequelae]
  - Dehydration [Recovered/Resolved]
  - Urinary tract infection [Unknown]
  - Nephrolithiasis [Unknown]
  - Diarrhoea [Unknown]

NARRATIVE: CASE EVENT DATE: 2016
